FAERS Safety Report 21995361 (Version 1)
Quarter: 2023Q1

REPORT INFORMATION
  Report Type: Spontaneous
  Country: CA (occurrence: CA)
  Receive Date: 20230215
  Receipt Date: 20230215
  Transmission Date: 20230418
  Serious: Yes (Other)
  Sender: FDA-Public Use
  Company Number: CA-002147023-NVSC2023CA029304

PATIENT
  Age: 65 Year
  Sex: Male

DRUGS (19)
  1. CIPROFLOXACIN HYDROCHLORIDE [Interacting]
     Active Substance: CIPROFLOXACIN HYDROCHLORIDE
     Indication: Pneumonia
     Dosage: 500 MG, BID (2 EVERY 1 DAYS)
     Route: 048
  2. CHLORPROMAZINE [Interacting]
     Active Substance: CHLORPROMAZINE
     Indication: Schizophrenia
     Dosage: UNK
     Route: 065
  3. CHLORPROMAZINE [Interacting]
     Active Substance: CHLORPROMAZINE
     Indication: Organic brain syndrome
     Dosage: UNK
     Route: 065
  4. CHLORPROMAZINE [Interacting]
     Active Substance: CHLORPROMAZINE
     Indication: Epilepsy
     Dosage: UNK
     Route: 065
  5. PHENYTOIN SODIUM [Interacting]
     Active Substance: PHENYTOIN SODIUM
     Indication: Schizophrenia
     Dosage: 100 MG, TID (3 EVERY 1 DAYS)
     Route: 048
  6. PHENYTOIN SODIUM [Interacting]
     Active Substance: PHENYTOIN SODIUM
     Indication: Organic brain syndrome
     Dosage: UNK
     Route: 065
  7. PHENYTOIN SODIUM [Interacting]
     Active Substance: PHENYTOIN SODIUM
     Indication: Epilepsy
     Dosage: UNK
     Route: 065
  8. THIORIDAZINE [Interacting]
     Active Substance: THIORIDAZINE
     Indication: Schizophrenia
     Dosage: UNK
     Route: 065
  9. THIORIDAZINE [Interacting]
     Active Substance: THIORIDAZINE
     Indication: Organic brain syndrome
     Dosage: UNK
     Route: 065
  10. THIORIDAZINE [Interacting]
     Active Substance: THIORIDAZINE
     Indication: Epilepsy
     Dosage: UNK
     Route: 065
  11. BENZTROPINE [Concomitant]
     Active Substance: BENZTROPINE
     Indication: Schizophrenia
     Dosage: UNK
     Route: 065
  12. BENZTROPINE [Concomitant]
     Active Substance: BENZTROPINE
     Indication: Organic brain syndrome
  13. BENZTROPINE [Concomitant]
     Active Substance: BENZTROPINE
     Indication: Epilepsy
  14. CLONAZEPAM [Concomitant]
     Active Substance: CLONAZEPAM
     Indication: Schizophrenia
     Dosage: UNK
     Route: 065
  15. CLONAZEPAM [Concomitant]
     Active Substance: CLONAZEPAM
     Indication: Organic brain syndrome
  16. CLONAZEPAM [Concomitant]
     Active Substance: CLONAZEPAM
     Indication: Epilepsy
  17. LORAZEPAM [Concomitant]
     Active Substance: LORAZEPAM
     Indication: Schizophrenia
     Dosage: UNK
     Route: 065
  18. LORAZEPAM [Concomitant]
     Active Substance: LORAZEPAM
     Indication: Organic brain syndrome
  19. LORAZEPAM [Concomitant]
     Active Substance: LORAZEPAM
     Indication: Epilepsy

REACTIONS (2)
  - Seizure [Recovered/Resolved]
  - Drug interaction [Recovered/Resolved]
